FAERS Safety Report 6672919-2 (Version None)
Quarter: 2010Q2

REPORT INFORMATION
  Report Type: 
  Country: None (occurrence: None)
  Receive Date: 20100408
  Receipt Date: 20100318
  Transmission Date: 20101027
  Serious: Yes (Other)
  Sender: FDA-Public Use
  Company Number: US-BAXTER-2009BH019875

PATIENT
  Age: 87 Year
  Sex: Male

DRUGS (1)
  1. CARDIOPLEGIA BASE SOLUTION IN PLASTIC CONTAINER [Suspect]
     Indication: CARDIAC OPERATION
     Route: 065
     Dates: start: 20091229, end: 20091229

REACTIONS (2)
  - CARDIAC DISORDER [None]
  - DRUG INEFFECTIVE [None]
